FAERS Safety Report 23485223 (Version 1)
Quarter: 2024Q1

REPORT INFORMATION
  Report Type: Spontaneous
  Country: JP (occurrence: JP)
  Receive Date: 20240206
  Receipt Date: 20240206
  Transmission Date: 20240410
  Serious: Yes (Other)
  Sender: FDA-Public Use
  Company Number: JP-SA-2024SA033287

PATIENT

DRUGS (1)
  1. PLAVIX [Suspect]
     Active Substance: CLOPIDOGREL BISULFATE
     Indication: Subarachnoid haemorrhage
     Dosage: 25 MG, QD
     Route: 048

REACTIONS (2)
  - Hydrocephalus [Unknown]
  - Off label use [Unknown]
